FAERS Safety Report 9859067 (Version 3)
Quarter: 2014Q1

REPORT INFORMATION
  Report Type: Report from Study
  Country: US (occurrence: US)
  Receive Date: 20140131
  Receipt Date: 20140224
  Transmission Date: 20141002
  Serious: Yes (Hospitalization)
  Sender: FDA-Public Use
  Company Number: US-SANOFI-AVENTIS-2013SA072061

PATIENT
  Age: 49 Year
  Sex: Female

DRUGS (1)
  1. AUBAGIO [Suspect]
     Indication: MULTIPLE SCLEROSIS
     Route: 048
     Dates: start: 20130509

REACTIONS (5)
  - Pneumonia [Recovering/Resolving]
  - Hypoaesthesia [Recovering/Resolving]
  - Migraine [Recovering/Resolving]
  - Skin swelling [Unknown]
  - Rash [Unknown]
